FAERS Safety Report 13012110 (Version 40)
Quarter: 2020Q1

REPORT INFORMATION
  Report Type: Report from Study
  Country: CO (occurrence: CO)
  Receive Date: 20161209
  Receipt Date: 20200206
  Transmission Date: 20200409
  Serious: Yes (Life-Threatening, Other)
  Sender: FDA-Public Use
  Company Number: PHHY2016CO167424

PATIENT
  Age: 62 Year
  Sex: Female
  Weight: 67.8 kg

DRUGS (15)
  1. TASIGNA [Suspect]
     Active Substance: NILOTINIB
     Dosage: 300 MG, Q12H (2 TABLETS OF 150 MG)
     Route: 048
     Dates: start: 20141001
  2. MAGNESIUM SULFATE. [Concomitant]
     Active Substance: MAGNESIUM SULFATE
     Indication: PRODUCT USED FOR UNKNOWN INDICATION
     Dosage: 20 MG/ML, UNK
     Route: 065
  3. TASIGNA [Suspect]
     Active Substance: NILOTINIB
     Dosage: 400 MG, Q12H (EVERY 12 HOURS)
     Route: 048
     Dates: start: 201403
  4. TASIGNA [Suspect]
     Active Substance: NILOTINIB
     Dosage: UNK, Q12H
     Route: 048
  5. TASIGNA [Suspect]
     Active Substance: NILOTINIB
     Dosage: 600 MG
     Route: 048
  6. DICLOFENAC [Concomitant]
     Active Substance: DICLOFENAC
     Indication: PRODUCT USED FOR UNKNOWN INDICATION
     Dosage: 75 MG/3 ML (INJECTABLE SOLUTION)
     Route: 065
  7. TASIGNA [Suspect]
     Active Substance: NILOTINIB
     Indication: CHRONIC MYELOID LEUKAEMIA
     Dosage: 300 MG, Q12H (2 CAPSULES OF 150 MG EVERY 12 HOURS)
     Route: 048
     Dates: start: 20121201, end: 20170206
  8. TASIGNA [Suspect]
     Active Substance: NILOTINIB
     Dosage: 300 MG, Q12H (EVERY 12 HOURS)
     Route: 048
     Dates: start: 201403
  9. TASIGNA [Suspect]
     Active Substance: NILOTINIB
     Dosage: 200 MG, Q12H
     Route: 048
     Dates: start: 20140527
  10. TASIGNA [Suspect]
     Active Substance: NILOTINIB
     Dosage: 150 MG
     Route: 065
     Dates: start: 20191113
  11. DIPHENHYDRAMINE. [Concomitant]
     Active Substance: DIPHENHYDRAMINE
     Indication: PRODUCT USED FOR UNKNOWN INDICATION
     Dosage: 10 MG/ML, UNK
     Route: 065
  12. TASIGNA [Suspect]
     Active Substance: NILOTINIB
     Dosage: 300 MG, Q12H (150MG 2 CAPSULE EVERY 12 HOURS))
     Route: 048
  13. TRAMADOL. [Concomitant]
     Active Substance: TRAMADOL
     Indication: PRODUCT USED FOR UNKNOWN INDICATION
     Dosage: 50 MG1/ML (INJECTABLE SOLUTION)
     Route: 065
  14. TASIGNA [Suspect]
     Active Substance: NILOTINIB
     Dosage: 150 MG, Q12H (2 TABLET EVERY 12 HOURS)
     Route: 048
  15. LEVOTHYROXINE. [Concomitant]
     Active Substance: LEVOTHYROXINE
     Indication: THYROID DISORDER
     Route: 065

REACTIONS (45)
  - Vaginal haemorrhage [Unknown]
  - Ocular hyperaemia [Unknown]
  - Pain [Unknown]
  - Arthralgia [Recovering/Resolving]
  - Haemoglobin decreased [Unknown]
  - Anxiety [Unknown]
  - Tachycardia [Unknown]
  - Chest pain [Unknown]
  - Diabetes mellitus [Unknown]
  - Uterine haemorrhage [Unknown]
  - Varicose vein [Unknown]
  - Drug intolerance [Unknown]
  - Pallor [Unknown]
  - Crying [Unknown]
  - Anaemia [Unknown]
  - Dyspnoea [Unknown]
  - Chronic myeloid leukaemia [Unknown]
  - Malaise [Unknown]
  - Neck pain [Unknown]
  - Back pain [Unknown]
  - Oedema peripheral [Unknown]
  - Normochromic normocytic anaemia [Unknown]
  - Blood pressure increased [Unknown]
  - Toothache [Recovering/Resolving]
  - Microalbuminuria [Unknown]
  - Peripheral swelling [Unknown]
  - Hepatomegaly [Unknown]
  - Dyslipidaemia [Unknown]
  - Hyperglycaemia [Unknown]
  - Hepatic steatosis [Unknown]
  - Cough [Unknown]
  - Cardiac disorder [Unknown]
  - Blood creatinine decreased [Unknown]
  - Transferrin saturation decreased [Unknown]
  - Malignant neoplasm progression [Unknown]
  - Loose tooth [Recovering/Resolving]
  - Mean cell haemoglobin concentration abnormal [Unknown]
  - Hypertension [Unknown]
  - Depression [Unknown]
  - General physical health deterioration [Unknown]
  - Cholelithiasis [Unknown]
  - Hypothyroidism [Unknown]
  - Iron deficiency [Unknown]
  - Neutrophil count increased [Unknown]
  - Pain in extremity [Unknown]

NARRATIVE: CASE EVENT DATE: 20151005
